FAERS Safety Report 12631534 (Version 2)
Quarter: 2016Q3

REPORT INFORMATION
  Report Type: Spontaneous
  Country: US (occurrence: US)
  Receive Date: 20160808
  Receipt Date: 20160808
  Transmission Date: 20161109
  Serious: No
  Sender: FDA-Public Use
  Company Number: US-BEH-2015054495

PATIENT
  Sex: Male
  Weight: 28 kg

DRUGS (9)
  1. LMX [Concomitant]
     Active Substance: LIDOCAINE
  2. FLONASE [Concomitant]
     Active Substance: FLUTICASONE PROPIONATE
  3. LIDOCAINE. [Concomitant]
     Active Substance: LIDOCAINE
  4. VALTREX [Concomitant]
     Active Substance: VALACYCLOVIR HYDROCHLORIDE
  5. AMICAR [Concomitant]
     Active Substance: AMINOCAPROIC ACID
  6. FLOMAX [Concomitant]
     Active Substance: TAMSULOSIN HYDROCHLORIDE
  7. DIPHENHYDRAMINE. [Concomitant]
     Active Substance: DIPHENHYDRAMINE
  8. EPIPEN [Concomitant]
     Active Substance: EPINEPHRINE
     Indication: ANAPHYLACTIC REACTION
  9. HIZENTRA [Suspect]
     Active Substance: HUMAN IMMUNOGLOBULIN G
     Indication: IMMUNODEFICIENCY
     Route: 058

REACTIONS (2)
  - Infusion site vesicles [Unknown]
  - Infusion site erythema [Unknown]
